FAERS Safety Report 6890410-5 (Version None)
Quarter: 2010Q3

REPORT INFORMATION
  Report Type: 
  Country: None (occurrence: None)
  Receive Date: 20100730
  Receipt Date: 20081020
  Transmission Date: 20110219
  Serious: No
  Sender: FDA-Public Use
  Company Number: US-PFIZER INC-2006054615

PATIENT
  Sex: Male
  Weight: 76.2 kg

DRUGS (5)
  1. LIPITOR [Suspect]
     Indication: BLOOD CHOLESTEROL INCREASED
     Route: 048
     Dates: start: 20050501, end: 20060201
  2. LIPITOR [Suspect]
     Indication: LOW DENSITY LIPOPROTEIN INCREASED
  3. LISINOPRIL [Concomitant]
     Route: 048
  4. FISH OIL [Concomitant]
     Route: 048
  5. MAGNESIUM [Concomitant]
     Route: 048

REACTIONS (2)
  - ANAEMIA [None]
  - WRONG TECHNIQUE IN DRUG USAGE PROCESS [None]
